FAERS Safety Report 6575529-0 (Version None)
Quarter: 2010Q1

REPORT INFORMATION
  Report Type: 
  Country: None (occurrence: None)
  Receive Date: 20100209
  Receipt Date: 20100202
  Transmission Date: 20100710
  Serious: Yes (Other)
  Sender: FDA-Public Use
  Company Number: NO-ROXANE LABORATORIES, INC.-2010-RO-00123RO

PATIENT
  Age: 38 Year
  Sex: Female
  Weight: 66 kg

DRUGS (5)
  1. LAMOTRIGINE [Suspect]
     Indication: EPILEPSY
     Dosage: 550 MG
  2. LAMOTRIGINE [Suspect]
     Dosage: 425 MG
  3. LAMOTRIGINE [Suspect]
     Dosage: 450 MG
  4. LAMOTRIGINE [Suspect]
     Dosage: 725 MG
  5. LAMOTRIGINE [Suspect]
     Dosage: 875 MG

REACTIONS (8)
  - DIPLOPIA [None]
  - DIZZINESS [None]
  - DYSPNOEA [None]
  - EPILEPSY [None]
  - GRAND MAL CONVULSION [None]
  - MUSCLE TWITCHING [None]
  - NAUSEA [None]
  - VISION BLURRED [None]
